FAERS Safety Report 6461796-0 (Version None)
Quarter: 2009Q4

REPORT INFORMATION
  Report Type: 
  Country: None (occurrence: None)
  Receive Date: 20091130
  Receipt Date: 20091118
  Transmission Date: 20100525
  Serious: Yes (Other)
  Sender: FDA-Public Use
  Company Number: PHEH2009US16407

PATIENT
  Sex: Female

DRUGS (5)
  1. COMBIPATCH [Suspect]
     Indication: POSTMENOPAUSE
     Dosage: UNK
     Route: 062
     Dates: start: 20080324, end: 20080414
  2. HYZAAR [Concomitant]
     Dosage: UNK
  3. XANAX [Concomitant]
     Dosage: 1 MG, UNK
  4. SEREVENT [Concomitant]
  5. TOPAMAX [Concomitant]
     Dosage: 100 MG, QD

REACTIONS (9)
  - BLINDNESS [None]
  - CHORIORETINOPATHY [None]
  - HOT FLUSH [None]
  - RETINAL DETACHMENT [None]
  - RETINAL OEDEMA [None]
  - RETINITIS [None]
  - VISION BLURRED [None]
  - VISUAL ACUITY REDUCED [None]
  - VISUAL IMPAIRMENT [None]
